FAERS Safety Report 5455782-7 (Version None)
Quarter: 2007Q3

REPORT INFORMATION
  Report Type: 
  Country: None (occurrence: None)
  Receive Date: 20070913
  Receipt Date: 20070913
  Transmission Date: 20080115
  Serious: Yes (Other)
  Sender: FDA-Public Use
  Company Number: None

PATIENT
  Sex: Male
  Weight: 82.2371 kg

DRUGS (16)
  1. BORTEZOMIB [Suspect]
     Indication: MULTIPLE MYELOMA
     Dosage: 2.6MG X1 (DAYS 1,4,8,11) IV PUSH
     Route: 042
     Dates: start: 20070720, end: 20070916
  2. MORPHINE SULFATE [Concomitant]
  3. CYCLOBENZAPRINE HCL [Concomitant]
  4. WARFARIN SODIUM [Concomitant]
  5. SERTRALINE [Concomitant]
  6. SIMVASTATIN [Concomitant]
  7. CYPROHEPTADINE HCL [Concomitant]
  8. DOCUSATE [Concomitant]
  9. RANITIDINE [Concomitant]
  10. LISINOPRIL [Concomitant]
  11. ATENOLOL [Concomitant]
  12. ODANSETOM [Concomitant]
  13. NPH ILETIN II [Concomitant]
  14. INSULIN ASPART [Concomitant]
  15. METFORMIN HCL [Concomitant]
  16. VALCYCLOVIR [Concomitant]

REACTIONS (2)
  - DISEASE RECURRENCE [None]
  - HERPES ZOSTER [None]
